FAERS Safety Report 7457391-7 (Version None)
Quarter: 2011Q2

REPORT INFORMATION
  Report Type: 
  Country: None (occurrence: None)
  Receive Date: 20110503
  Receipt Date: 20110503
  Transmission Date: 20111010
  Serious: No
  Sender: FDA-Public Use
  Company Number: None

PATIENT
  Age: 53 Year
  Sex: Male
  Weight: 86.1834 kg

DRUGS (1)
  1. METOCLOPRAMIDE [Suspect]
     Indication: DYSPHAGIA
     Dosage: 1 TABLET 4 PER DAY PO
     Route: 048
     Dates: start: 20110329, end: 20110426

REACTIONS (7)
  - MOVEMENT DISORDER [None]
  - MUSCLE SPASMS [None]
  - DEPRESSION [None]
  - PROTRUSION TONGUE [None]
  - PRODUCT LABEL ISSUE [None]
  - DYSARTHRIA [None]
  - GAIT DISTURBANCE [None]
